FAERS Safety Report 5936632-9 (Version None)
Quarter: 2008Q4

REPORT INFORMATION
  Report Type: 
  Country: None (occurrence: None)
  Receive Date: 20081030
  Receipt Date: 20081024
  Transmission Date: 20090506
  Serious: Yes (Hospitalization, Other)
  Sender: FDA-Public Use
  Company Number: JP-ALLERGAN-0803315US

PATIENT
  Sex: Female

DRUGS (4)
  1. BOTOX [Suspect]
     Indication: TORTICOLLIS
     Dosage: 72 UNITS, SINGLE
     Route: 030
     Dates: start: 20071012, end: 20071012
  2. BOTOX [Suspect]
     Dosage: 72 UNITS, SINGLE
     Route: 030
  3. BOTOX [Suspect]
     Dosage: 72 UNITS, SINGLE
     Route: 030
  4. DANTROLENE SODIUM [Concomitant]

REACTIONS (2)
  - RESPIRATORY FAILURE [None]
  - THERAPEUTIC RESPONSE DECREASED [None]
